FAERS Safety Report 18901239 (Version 1)
Quarter: 2021Q1

REPORT INFORMATION
  Report Type: Report from Study
  Country: IT (occurrence: IT)
  Receive Date: 20210216
  Receipt Date: 20210216
  Transmission Date: 20210420
  Serious: Yes (Hospitalization)
  Sender: FDA-Public Use
  Company Number: IT-MYLANLABS-2021M1009035

PATIENT
  Age: 62 Year
  Sex: Female
  Weight: 48 kg

DRUGS (12)
  1. PERTUZUMAB. [Suspect]
     Active Substance: PERTUZUMAB
     Dosage: MAINTAINACE DOSE, DATE OF MOST RECENT DOSE PRIOR TO EVENT: 29/APR/2014.
     Route: 042
  2. CAPECITABINE. [Suspect]
     Active Substance: CAPECITABINE
     Indication: HER2 POSITIVE GASTRIC CANCER
     Dosage: DATE OF MOST RECENT DOSE PRIOR TO EVENT ON 05/MAY/2014.
     Route: 048
     Dates: start: 20140429
  3. ALIZAPRIDE [Concomitant]
     Active Substance: ALIZAPRIDE
     Indication: NAUSEA
     Dosage: 100 MILLIGRAM
     Route: 042
     Dates: start: 20140509, end: 20140509
  4. DEXAMETHASONE. [Concomitant]
     Active Substance: DEXAMETHASONE
     Indication: ASTHENIA
     Dosage: 8 MILLIGRAM
     Route: 042
     Dates: start: 20140509, end: 20140509
  5. RANITIDINE. [Concomitant]
     Active Substance: RANITIDINE
     Indication: GASTROINTESTINAL DISORDER PROPHYLAXIS
     Dosage: 50 MILLIGRAM
     Route: 042
     Dates: start: 20140509, end: 20140509
  6. CISPLATIN. [Suspect]
     Active Substance: CISPLATIN
     Indication: HER2 POSITIVE GASTRIC CANCER
     Dosage: 118 MILLIGRAM
     Route: 042
     Dates: start: 20140429
  7. TRASTUZUMAB. [Suspect]
     Active Substance: TRASTUZUMAB
     Dosage: (MAINTENANCE DOSE) DATE OF MOST RECENT DOSE PRIOR TO EVENT: 29/APR/2014
     Route: 042
  8. POTASSIUM CHLORIDE. [Concomitant]
     Active Substance: POTASSIUM CHLORIDE
     Indication: ACUTE KIDNEY INJURY
     Dosage: UNK
     Route: 042
     Dates: start: 20140509, end: 20140509
  9. FLUOROURACIL. [Suspect]
     Active Substance: FLUOROURACIL
     Indication: HER2 POSITIVE GASTRIC CANCER
     Dosage: UNK
     Route: 042
     Dates: start: 20140527
  10. PERTUZUMAB. [Suspect]
     Active Substance: PERTUZUMAB
     Indication: HER2 POSITIVE GASTRIC CANCER
     Dosage: LOADING DOSE
     Route: 042
     Dates: start: 20140429
  11. TRASTUZUMAB. [Suspect]
     Active Substance: TRASTUZUMAB
     Indication: HER2 POSITIVE GASTRIC CANCER
     Dosage: (LOADING DOSE) DATE OF MOST RECENT DOSE PRIOR TO EVENT: 29/APR/2014
     Route: 042
     Dates: start: 20140429
  12. TRIATEC                            /00885601/ [Concomitant]
     Active Substance: RAMIPRIL
     Indication: HYPERTENSION
     Dosage: 15 MILLIGRAM
     Route: 048
     Dates: start: 20110601

REACTIONS (1)
  - Malnutrition [Recovered/Resolved]

NARRATIVE: CASE EVENT DATE: 20140509
